FAERS Safety Report 6304400-4 (Version None)
Quarter: 2009Q3

REPORT INFORMATION
  Report Type: 
  Country: None (occurrence: None)
  Receive Date: 20090811
  Receipt Date: 20090730
  Transmission Date: 20100115
  Serious: Yes (Other)
  Sender: FDA-Public Use
  Company Number: PHEH2009US03754

PATIENT
  Age: 75 Year
  Sex: Female

DRUGS (5)
  1. RECLAST [Suspect]
     Dosage: UNK
     Dates: start: 20090403, end: 20090403
  2. ANTIHYPERTENSIVES [Concomitant]
  3. WATER PILLS [Concomitant]
  4. ANALGESICS [Concomitant]
  5. ARAGLIN [Concomitant]

REACTIONS (20)
  - ARTHRALGIA [None]
  - BACK PAIN [None]
  - BEDRIDDEN [None]
  - BLOOD CALCIUM DECREASED [None]
  - BONE PAIN [None]
  - FACE INJURY [None]
  - FACIAL PAIN [None]
  - FATIGUE [None]
  - INFLUENZA LIKE ILLNESS [None]
  - JAW DISORDER [None]
  - LIMB INJURY [None]
  - MYALGIA [None]
  - NAUSEA [None]
  - OROPHARYNGEAL PAIN [None]
  - PAIN [None]
  - PAIN IN EXTREMITY [None]
  - PAIN IN JAW [None]
  - POLLAKIURIA [None]
  - RENAL PAIN [None]
  - VOMITING [None]
